FAERS Safety Report 13472765 (Version 3)
Quarter: 2017Q2

REPORT INFORMATION
  Report Type: Spontaneous
  Country: US (occurrence: US)
  Receive Date: 20170424
  Receipt Date: 20170509
  Transmission Date: 20170830
  Serious: Yes (Hospitalization, Other)
  Sender: FDA-Public Use
  Company Number: US-ALEXION-A201704347

PATIENT
  Sex: Male

DRUGS (1)
  1. SOLIRIS [Suspect]
     Active Substance: ECULIZUMAB
     Indication: PAROXYSMAL NOCTURNAL HAEMOGLOBINURIA
     Dosage: 600 MG, QW
     Route: 042
     Dates: start: 20170407, end: 20170422

REACTIONS (11)
  - White blood cell count decreased [Unknown]
  - Blood lactate dehydrogenase abnormal [Recovered/Resolved]
  - Red blood cell count decreased [Unknown]
  - Platelet count decreased [Unknown]
  - Diarrhoea haemorrhagic [Not Recovered/Not Resolved]
  - Faeces discoloured [Unknown]
  - Aplastic anaemia [Not Recovered/Not Resolved]
  - Gastric ulcer [Unknown]
  - Gastric ulcer haemorrhage [Not Recovered/Not Resolved]
  - Loss of consciousness [Unknown]
  - Haemoglobin decreased [Unknown]

NARRATIVE: CASE EVENT DATE: 20170420
